FAERS Safety Report 7742995-4 (Version None)
Quarter: 2011Q3

REPORT INFORMATION
  Report Type: 
  Country: None (occurrence: None)
  Receive Date: 20110908
  Receipt Date: 20110908
  Transmission Date: 20111222
  Serious: Yes (Life-Threatening)
  Sender: FDA-Public Use
  Company Number: None

PATIENT
  Age: 42 Year
  Sex: Female
  Weight: 70.3075 kg

DRUGS (1)
  1. LAMICTAL [Suspect]
     Dosage: 100MG 50MG X AM PM ORAL
     Route: 048
     Dates: start: 20101201, end: 20110801

REACTIONS (1)
  - RASH PAPULAR [None]
